FAERS Safety Report 8923823 (Version 2)
Quarter: 2012Q4

REPORT INFORMATION
  Report Type: 
  Country: US (occurrence: US)
  Receive Date: 20121126
  Receipt Date: 20121210
  Transmission Date: 20130627
  Serious: No
  Sender: FDA-Public Use
  Company Number: US-009507513-1211USA009985

PATIENT
  Sex: Female

DRUGS (2)
  1. FOSAMAX [Suspect]
     Indication: OSTEOPOROSIS
     Dosage: 70 mg, qw (once per week)
     Route: 048
     Dates: start: 200804, end: 201111
  2. PROTONIX [Concomitant]

REACTIONS (2)
  - Bone density decreased [Unknown]
  - Therapeutic response decreased [Unknown]
